FAERS Safety Report 6157410-4 (Version None)
Quarter: 2009Q2

REPORT INFORMATION
  Report Type: 
  Country: None (occurrence: None)
  Receive Date: 20090414
  Receipt Date: 20090402
  Transmission Date: 20091009
  Serious: Yes (Other)
  Sender: FDA-Public Use
  Company Number: CFX20090003

PATIENT
  Age: 57 Year
  Sex: Male
  Weight: 84.369 kg

DRUGS (3)
  1. CIPROFLOXACIN [Suspect]
     Indication: PROSTATITIS
     Dosage: 500 MG, 2 IN 1 D, PER ORAL
     Route: 048
     Dates: start: 20090228, end: 20090310
  2. CIPROFLOXACIN [Suspect]
     Indication: TOOTH INFECTION
     Dosage: PER ORAL
     Route: 048
     Dates: start: 20070101, end: 20070101
  3. VITAMIN B-12 [Concomitant]

REACTIONS (14)
  - BARRETT'S OESOPHAGUS [None]
  - BLOOD GLUCOSE INCREASED [None]
  - DRUG INEFFECTIVE [None]
  - DRY MOUTH [None]
  - DYSPHAGIA [None]
  - FEELING ABNORMAL [None]
  - GASTROOESOPHAGEAL REFLUX DISEASE [None]
  - LETHARGY [None]
  - MALAISE [None]
  - NAUSEA [None]
  - ORTHOSTATIC HYPOTENSION [None]
  - SOMNOLENCE [None]
  - TREMOR [None]
  - URINE CYTOLOGY ABNORMAL [None]
